FAERS Safety Report 6418301-4 (Version None)
Quarter: 2009Q4

REPORT INFORMATION
  Report Type: 
  Country: None (occurrence: None)
  Receive Date: 20091023
  Receipt Date: 20091013
  Transmission Date: 20100525
  Serious: Yes (Hospitalization, Other)
  Sender: FDA-Public Use
  Company Number: ADR36462009

PATIENT
  Age: 83 Year
  Sex: Male

DRUGS (8)
  1. SIMVASTATIN [Suspect]
     Dosage: 40 MG ORAL
     Route: 048
     Dates: start: 20070703
  2. ASPIRIN [Concomitant]
  3. ATENOLOL [Concomitant]
  4. DOXAZOSIN MESYLATE [Concomitant]
  5. EPROSARTAN [Concomitant]
  6. FLUTICASONE [Concomitant]
  7. LEVOTHYROXINE SODIUM [Concomitant]
  8. NICADIPINE [Concomitant]

REACTIONS (6)
  - BACK PAIN [None]
  - BILE DUCT CANCER [None]
  - DECREASED APPETITE [None]
  - FATIGUE [None]
  - MOBILITY DECREASED [None]
  - RHABDOMYOLYSIS [None]
